FAERS Safety Report 22270668 (Version 4)
Quarter: 2023Q2

REPORT INFORMATION
  Report Type: Report from Study
  Country: US (occurrence: None)
  Receive Date: 20230501
  Receipt Date: 20230526
  Transmission Date: 20230722
  Serious: Yes (Hospitalization)
  Sender: FDA-Public Use
  Company Number: US-ROCHE-3340440

PATIENT
  Age: 73 Year
  Sex: Female
  Weight: 80.5 kg

DRUGS (13)
  1. ATEZOLIZUMAB [Suspect]
     Active Substance: ATEZOLIZUMAB
     Indication: Non-small cell lung cancer metastatic
     Route: 041
     Dates: start: 20230412
  2. EFINEPTAKIN ALFA [Suspect]
     Active Substance: EFINEPTAKIN ALFA
     Indication: Non-small cell lung cancer
     Route: 030
     Dates: start: 20230412
  3. ALBUTEROL [Concomitant]
     Active Substance: ALBUTEROL
  4. IPRATROPIUM [Concomitant]
     Active Substance: IPRATROPIUM
  5. FLUTICASONE [Concomitant]
     Active Substance: FLUTICASONE
  6. CARVEDILOL [Concomitant]
     Active Substance: CARVEDILOL
  7. ARIPIPRAZOLE [Concomitant]
     Active Substance: ARIPIPRAZOLE
  8. CLOPIDOGREL [Concomitant]
     Active Substance: CLOPIDOGREL BISULFATE
  9. DILTIAZEM [Concomitant]
     Active Substance: DILTIAZEM
  10. GABAPENTIN [Concomitant]
     Active Substance: GABAPENTIN
  11. CLONAZEPAM [Concomitant]
     Active Substance: CLONAZEPAM
  12. DULOXETINE [Concomitant]
     Active Substance: DULOXETINE
  13. OXYCODONE [Concomitant]
     Active Substance: OXYCODONE

REACTIONS (2)
  - Angina pectoris [Recovered/Resolved]
  - Confusional state [Recovered/Resolved]

NARRATIVE: CASE EVENT DATE: 20230425
